FAERS Safety Report 7869513-4 (Version None)
Quarter: 2011Q4

REPORT INFORMATION
  Report Type: 
  Country: None (occurrence: None)
  Receive Date: 20111028
  Receipt Date: 20111028
  Transmission Date: 20120403
  Serious: No
  Sender: FDA-Public Use
  Company Number: None

PATIENT
  Age: 70 Year
  Sex: Male
  Weight: 101.1521 kg

DRUGS (5)
  1. LANTUS [Concomitant]
  2. COENZYME Q10 [Suspect]
     Indication: CONDITION AGGRAVATED
     Dosage: 120 MG PO BID
     Route: 048
     Dates: start: 20111024, end: 20111025
  3. LASIX [Concomitant]
  4. LIPITOR [Concomitant]
  5. ALDACTONE [Concomitant]

REACTIONS (2)
  - DYSPNOEA [None]
  - ANGINA PECTORIS [None]
